FAERS Safety Report 9302811 (Version 2)
Quarter: 2013Q2

REPORT INFORMATION
  Report Type: Report from Study
  Country: TH (occurrence: TH)
  Receive Date: 20130522
  Receipt Date: 20130529
  Transmission Date: 20140414
  Serious: Yes (Hospitalization)
  Sender: FDA-Public Use
  Company Number: TH-ASTELLAS-2013JP005989

PATIENT
  Age: 22 Year
  Sex: Female
  Weight: 56.1 kg

DRUGS (2)
  1. TACROLIMUS CAPSULES [Suspect]
     Indication: LUPUS NEPHRITIS
     Dosage: 5 MG, UNKNOWN/D
     Route: 048
     Dates: start: 20130423
  2. PREDNISOLONE [Concomitant]
     Dosage: 45 MG, UNKNOWN/D
     Route: 065
     Dates: start: 20130508

REACTIONS (2)
  - Pyrexia [Recovered/Resolved]
  - Cellulitis [Recovered/Resolved]
